FAERS Safety Report 5792260-X (Version None)
Quarter: 2008Q2

REPORT INFORMATION
  Report Type: 
  Country: None (occurrence: None)
  Receive Date: 20080625
  Receipt Date: 20080305
  Transmission Date: 20081010
  Serious: Yes (Life-Threatening, Hospitalization, Disabling)
  Sender: FDA-Public Use
  Company Number: US-WYE-H02268808

PATIENT
  Age: 58 Year
  Sex: Female

DRUGS (2)
  1. TORISEL [Suspect]
     Indication: RENAL CELL CARCINOMA
     Dosage: 25 MG 1X PER 1 WK, INTRAVENOUS
     Route: 042
     Dates: start: 20071224
  2. AVASTIN [Suspect]
     Indication: RENAL CELL CARCINOMA
     Dosage: 1700 MG Q 2 WEEKS (5MG/KG), INTRAVENOUS
     Route: 042
     Dates: start: 20070220

REACTIONS (3)
  - DYSPNOEA [None]
  - HYPERTENSION [None]
  - RENAL FAILURE ACUTE [None]
